FAERS Safety Report 7914123-3 (Version None)
Quarter: 2011Q4

REPORT INFORMATION
  Report Type: 
  Country: None (occurrence: None)
  Receive Date: 20111115
  Receipt Date: 20111108
  Transmission Date: 20120403
  Serious: Yes (Other)
  Sender: FDA-Public Use
  Company Number: DE-PFIZER INC-2011256279

PATIENT
  Age: 28 Year
  Sex: Female
  Weight: 71 kg

DRUGS (5)
  1. GEMTUZUMAB OZOGAMICIN [Suspect]
     Indication: ACUTE MYELOID LEUKAEMIA
     Dosage: 5.28 MG/DAY
     Dates: start: 20111017, end: 20111017
  2. CYTARABINE [Suspect]
     Indication: ACUTE MYELOID LEUKAEMIA
     Dosage: 176 MG/DAY
     Dates: start: 20111016, end: 20111020
  3. ETOPOSIDE [Suspect]
     Indication: ACUTE MYELOID LEUKAEMIA
     Dosage: 176 MG/DAY
     Dates: start: 20111016, end: 20111018
  4. IDARUBICIN HCL [Suspect]
     Indication: ACUTE MYELOID LEUKAEMIA
     Dosage: 21.12 MG/DAY
     Dates: start: 20111016, end: 20111020
  5. ALITRETINOIN [Suspect]
     Indication: ACUTE MYELOID LEUKAEMIA
     Dosage: 10 MG/DAY
     Dates: start: 20111021

REACTIONS (1)
  - PNEUMONIA [None]
